FAERS Safety Report 9403552 (Version 2)
Quarter: 2013Q3

REPORT INFORMATION
  Report Type: Spontaneous
  Country: US (occurrence: US)
  Receive Date: 20130717
  Receipt Date: 20130826
  Transmission Date: 20140515
  Serious: No
  Sender: FDA-Public Use
  Company Number: US-009507513-1307USA007190

PATIENT
  Age: 66 Year
  Sex: Female
  Weight: 41.72 kg

DRUGS (8)
  1. MIRALAX [Suspect]
     Indication: COLONOSCOPY
     Dosage: 238 G, ONCE
     Route: 048
     Dates: start: 20130625, end: 20130627
  2. MIRALAX [Suspect]
     Indication: MEDICAL OBSERVATION
  3. SYNTHROID [Concomitant]
     Indication: HYPOTHYROIDISM
     Dosage: UNK, UNKNOWN
  4. FERROUS SULFATE [Concomitant]
     Indication: ANAEMIA
     Dosage: UNK, UNKNOWN
  5. VITAMIN D (UNSPECIFIED) [Concomitant]
     Indication: VITAMIN D DEFICIENCY
     Dosage: UNK, UNKNOWN
  6. CYANOCOBALAMIN [Concomitant]
     Indication: ANAEMIA
     Dosage: UNK, UNKNOWN
  7. COLACE [Concomitant]
     Indication: CONSTIPATION
  8. BIOTIN [Concomitant]
     Indication: PRODUCT USED FOR UNKNOWN INDICATION
     Dosage: UNK, UNKNOWN

REACTIONS (3)
  - Overdose [Unknown]
  - Drug ineffective for unapproved indication [Unknown]
  - Off label use [Unknown]
